FAERS Safety Report 7646039-4 (Version None)
Quarter: 2011Q3

REPORT INFORMATION
  Report Type: 
  Country: None (occurrence: None)
  Receive Date: 20110801
  Receipt Date: 20110728
  Transmission Date: 20111222
  Serious: Yes (Death)
  Sender: FDA-Public Use
  Company Number: PL-BRISTOL-MYERS SQUIBB COMPANY-15228109

PATIENT
  Age: 57 Year
  Sex: Female
  Weight: 55 kg

DRUGS (2)
  1. CISPLATIN [Suspect]
     Indication: NON-SMALL CELL LUNG CANCER
     Dosage: THIRD AND RECENT INFUSION (85MG) ON 02JUL10.
     Route: 042
     Dates: start: 20100507, end: 20100702
  2. GEMCITABINE [Suspect]
     Indication: NON-SMALL CELL LUNG CANCER
     Dosage: SIXTH AND RECENT INFUSION (1425MG)ON 09JUL10.
     Route: 042
     Dates: start: 20100507, end: 20100709

REACTIONS (1)
  - RESPIRATORY TRACT HAEMORRHAGE [None]
